FAERS Safety Report 5154280-8 (Version None)
Quarter: 2006Q4

REPORT INFORMATION
  Report Type: 
  Country: None (occurrence: None)
  Receive Date: 20061114
  Receipt Date: 20061103
  Transmission Date: 20070319
  Serious: Yes (Life-Threatening)
  Sender: FDA-Public Use
  Company Number: GXKR2006IT07069

PATIENT
  Age: 50 Year
  Sex: Male
  Weight: 85 kg

DRUGS (3)
  1. PROPRANOLOL [Suspect]
     Indication: INTENTIONAL OVERDOSE
     Dosage: 1600 MG, ORAL
     Route: 048
  2. HYDROCHLORIC ACID (HYDROCHLORIC ACID) [Suspect]
     Indication: INTENTIONAL OVERDOSE
     Dosage: 1500 ML, ORAL
     Route: 048
  3. OXAZEPAM [Concomitant]

REACTIONS (9)
  - CARDIAC ARREST [None]
  - CARDIOVASCULAR INSUFFICIENCY [None]
  - CAROTID PULSE DECREASED [None]
  - HYPOTENSION [None]
  - INTENTIONAL OVERDOSE [None]
  - METABOLIC ACIDOSIS [None]
  - OVERDOSE [None]
  - SINUS BRADYCARDIA [None]
  - SUICIDE ATTEMPT [None]
